FAERS Safety Report 16902988 (Version 2)
Quarter: 2019Q4

REPORT INFORMATION
  Report Type: Spontaneous
  Country: US (occurrence: US)
  Receive Date: 20191010
  Receipt Date: 20191016
  Transmission Date: 20200122
  Serious: No
  Sender: FDA-Public Use
  Company Number: US-GILEAD-2019-0432515

PATIENT
  Age: 54 Year
  Sex: Male
  Weight: 77.55 kg

DRUGS (11)
  1. MILK THISTLE EXTRACT [Concomitant]
     Active Substance: DIETARY SUPPLEMENT\HERBALS\MILK THISTLE
  2. COQNOL [Concomitant]
  3. CURCUMIN COMPLEX [Concomitant]
  4. AMINO ACIDS NOS [Concomitant]
     Active Substance: AMINO ACIDS, SOURCE UNSPECIFIED
  5. OMEGA-3 TRIGLYCERIDES [Concomitant]
  6. VITAMIN D3 [Concomitant]
     Active Substance: CHOLECALCIFEROL
  7. PROTEINS NOS [Concomitant]
     Active Substance: PROTEIN
  8. PROBIOTICS SYNERGY SPHERES [Concomitant]
  9. TRUVADA [Suspect]
     Active Substance: EMTRICITABINE\TENOFOVIR DISOPROXIL FUMARATE
     Indication: PRODUCT USED FOR UNKNOWN INDICATION
     Dosage: UNK
     Route: 065
     Dates: end: 201906
  10. TESTOSTERONE. [Concomitant]
     Active Substance: TESTOSTERONE
  11. DHEA [Concomitant]
     Active Substance: PRASTERONE

REACTIONS (1)
  - Hepatic enzyme increased [Recovered/Resolved]

NARRATIVE: CASE EVENT DATE: 201903
